FAERS Safety Report 8998975 (Version 1)
Quarter: 2013Q1

REPORT INFORMATION
  Report Type: Spontaneous
  Country: US (occurrence: US)
  Receive Date: 20130103
  Receipt Date: 20130103
  Transmission Date: 20140127
  Serious: No
  Sender: FDA-Public Use
  Company Number: US-PFIZER INC-2012315324

PATIENT
  Sex: Male

DRUGS (2)
  1. NICOTROL NASAL SPRAY [Suspect]
     Dosage: UNK
  2. NICOTROL NASAL SPRAY [Suspect]
     Dosage: UNK

REACTIONS (2)
  - Drug ineffective [Unknown]
  - Nasal discomfort [Unknown]
